FAERS Safety Report 16582831 (Version 4)
Quarter: 2019Q4

REPORT INFORMATION
  Report Type: Spontaneous
  Country: JP (occurrence: JP)
  Receive Date: 20190717
  Receipt Date: 20191015
  Transmission Date: 20200122
  Serious: Yes (Hospitalization)
  Sender: FDA-Public Use
  Company Number: JP-BEH-2019104411

PATIENT
  Age: 10 Year
  Sex: Male
  Weight: 21.5 kg

DRUGS (4)
  1. POLYGLOBIN [Concomitant]
     Active Substance: HUMAN IMMUNOGLOBULIN G
     Dosage: UNK
     Route: 065
     Dates: end: 201511
  2. HIZENTRA [Suspect]
     Active Substance: HUMAN IMMUNOGLOBULIN G
     Dosage: 180 MG/KG, 1 WEEK
     Route: 058
     Dates: start: 201803
  3. HIZENTRA [Suspect]
     Active Substance: HUMAN IMMUNOGLOBULIN G
     Indication: BLOOD IMMUNOGLOBULIN G DECREASED
     Dosage: 2G (120 MG/KG), 1 WEEK
     Route: 058
     Dates: start: 201511, end: 201803
  4. HIZENTRA [Suspect]
     Active Substance: HUMAN IMMUNOGLOBULIN G
     Dosage: 4 GRAM, 1 WEEK
     Route: 058
     Dates: start: 201804

REACTIONS (8)
  - Cough [Recovered/Resolved]
  - Pleurisy [Recovered/Resolved]
  - Pneumonia [Recovered/Resolved]
  - Pyrexia [Recovered/Resolved]
  - Administration site erythema [Recovered/Resolved]
  - Underdose [Recovered/Resolved]
  - Chest pain [Recovered/Resolved]
  - Inflammation [Recovered/Resolved]

NARRATIVE: CASE EVENT DATE: 20180217
